FAERS Safety Report 21275529 (Version 2)
Quarter: 2022Q4

REPORT INFORMATION
  Report Type: Spontaneous
  Country: US (occurrence: US)
  Receive Date: 20220831
  Receipt Date: 20221027
  Transmission Date: 20230113
  Serious: Yes (Other)
  Sender: FDA-Public Use
  Company Number: US-ALNYLAM PHARMACEUTICALS, INC.-ALN-2022-002776

PATIENT

DRUGS (1)
  1. GIVLAARI [Suspect]
     Active Substance: GIVOSIRAN SODIUM
     Indication: Porphyria non-acute
     Dosage: UNK
     Route: 058
     Dates: start: 20200101

REACTIONS (8)
  - Paresis [Not Recovered/Not Resolved]
  - Muscle twitching [Unknown]
  - Neuralgia [Not Recovered/Not Resolved]
  - Abdominal pain upper [Unknown]
  - Injection site pain [Unknown]
  - Blood iron abnormal [Recovered/Resolved]
  - Mental disorder [Unknown]
  - Condition aggravated [Unknown]
